FAERS Safety Report 4657575-7 (Version None)
Quarter: 2005Q2

REPORT INFORMATION
  Report Type: 
  Country: None (occurrence: None)
  Receive Date: 20050405
  Receipt Date: 20040209
  Transmission Date: 20051028
  Serious: Yes (Other)
  Sender: FDA-Public Use
  Company Number: 2003037090

PATIENT
  Age: 43 Year
  Sex: Female

DRUGS (3)
  1. GEODON [Suspect]
     Indication: DEPRESSION
     Dosage: 120 MG (DAILY)
  2. PAROXETINE HYDROCHLORIDE [Concomitant]
  3. CLONAZEPAM [Concomitant]

REACTIONS (1)
  - BUNDLE BRANCH BLOCK RIGHT [None]
